FAERS Safety Report 4401101-4 (Version None)
Quarter: 2004Q3

REPORT INFORMATION
  Report Type: 
  Country: None (occurrence: None)
  Receive Date: 20040907
  Receipt Date: 20031031
  Transmission Date: 20050211
  Serious: No
  Sender: FDA-Public Use
  Company Number: US-BRISTOL-MYERS SQUIBB COMPANY-12423786

PATIENT
  Age: 75 Year
  Sex: Female
  Weight: 68 kg

DRUGS (4)
  1. COUMADIN [Suspect]
     Indication: HEART VALVE REPLACEMENT
     Dosage: RECEIVED 2.5 MG ONCE DAILY FOR FOUR DAYS/WEEK AND 3.0 MG ONCE DAILY FOR THREE DAYS/WEEK.
     Route: 048
  2. SULAR [Concomitant]
  3. AVAPRO [Concomitant]
  4. MULTI-VITAMIN [Concomitant]

REACTIONS (1)
  - INTERNATIONAL NORMALISED RATIO DECREASED [None]
